FAERS Safety Report 22071548 (Version 2)
Quarter: 2023Q1

REPORT INFORMATION
  Report Type: Spontaneous
  Country: US (occurrence: US)
  Receive Date: 20230307
  Receipt Date: 20230327
  Transmission Date: 20230418
  Serious: Yes (Other)
  Sender: FDA-Public Use
  Company Number: US-AMERICAN REGENT INC-2023000565

PATIENT
  Age: 70 Year
  Sex: Female
  Weight: 46.6 kg

DRUGS (6)
  1. VENOFER [Suspect]
     Active Substance: IRON SUCROSE
     Indication: Product used for unknown indication
     Dosage: 50 MG,1 IN 1 WK
     Dates: start: 20221028
  2. VENOFER [Suspect]
     Active Substance: IRON SUCROSE
     Dosage: 50 MG,1 IN 1 WK
     Dates: start: 20230215, end: 20230215
  3. VENOFER [Suspect]
     Active Substance: IRON SUCROSE
     Dosage: 50 MG,1 IN 1 WK
     Dates: start: 20230221, end: 20230221
  4. MIRCERA [Suspect]
     Active Substance: METHOXY POLYETHYLENE GLYCOL-EPOETIN BETA
     Indication: Anaemia
     Dosage: UNK, FIRST DOSE
     Route: 042
  5. MIRCERA [Suspect]
     Active Substance: METHOXY POLYETHYLENE GLYCOL-EPOETIN BETA
     Dosage: 75 MICROGRAM
     Route: 042
     Dates: start: 20230215, end: 20230215
  6. CALCITRIOL [Concomitant]
     Active Substance: CALCITRIOL
     Indication: Product used for unknown indication
     Dosage: UNK
     Route: 065

REACTIONS (6)
  - Renal disorder [Recovered/Resolved]
  - Feeling hot [Recovered/Resolved]
  - Blood pressure abnormal [Recovered/Resolved]
  - Hyperventilation [Recovered/Resolved]
  - Nausea [Recovered/Resolved]
  - Flushing [Recovered/Resolved]

NARRATIVE: CASE EVENT DATE: 20230215
